FAERS Safety Report 14168559 (Version 4)
Quarter: 2018Q1

REPORT INFORMATION
  Report Type: Report from Study
  Country: None (occurrence: CA)
  Receive Date: 20171108
  Receipt Date: 20180213
  Transmission Date: 20180508
  Serious: Yes (Hospitalization, Other)
  Sender: FDA-Public Use
  Company Number: CA-ABBVIE-17K-028-2154069-00

PATIENT
  Age: 59 Year
  Sex: Male

DRUGS (3)
  1. CORTISONE [Concomitant]
     Active Substance: CORTISONE\HYDROCORTISONE
     Indication: CROHN^S DISEASE
  2. HUMIRA [Suspect]
     Active Substance: ADALIMUMAB
     Route: 058
     Dates: start: 20171213
  3. HUMIRA [Suspect]
     Active Substance: ADALIMUMAB
     Indication: CROHN^S DISEASE
     Route: 058
     Dates: start: 20151223, end: 201706

REACTIONS (7)
  - Volvulus [Recovering/Resolving]
  - Intestinal obstruction [Recovered/Resolved]
  - Skin plaque [Not Recovered/Not Resolved]
  - Procedural intestinal perforation [Recovered/Resolved]
  - Post procedural complication [Recovered/Resolved]
  - Intestinal obstruction [Recovering/Resolving]
  - Incision site swelling [Unknown]

NARRATIVE: CASE EVENT DATE: 2017
